FAERS Safety Report 20594639 (Version 1)
Quarter: 2022Q1

REPORT INFORMATION
  Report Type: Spontaneous
  Country: US (occurrence: None)
  Receive Date: 20220314
  Receipt Date: 20220314
  Transmission Date: 20220423
  Serious: Yes (Death)
  Sender: FDA-Public Use
  Company Number: None

PATIENT
  Sex: Female
  Weight: 86.64 kg

DRUGS (26)
  1. IMATINIB MESYLATE [Suspect]
     Active Substance: IMATINIB MESYLATE
     Indication: Malignant connective tissue neoplasm
     Dosage: FREQUENCY : DAILY;?
     Route: 048
  2. IMATINIB MESYLATE [Suspect]
     Active Substance: IMATINIB MESYLATE
     Indication: Soft tissue sarcoma
  3. KLOR-CON M20 [Concomitant]
     Active Substance: POTASSIUM CHLORIDE
  4. FLUCONAZOLE [Concomitant]
     Active Substance: FLUCONAZOLE
  5. DOXYCYCLINE HYCLATE [Concomitant]
     Active Substance: DOXYCYCLINE HYCLATE
  6. DIPHENHYDRAMINE HYDROCHLORIDE\LIDOCAINE HYDROCHLORIDE\NYSTATIN [Concomitant]
     Active Substance: DIPHENHYDRAMINE HYDROCHLORIDE\LIDOCAINE HYDROCHLORIDE\NYSTATIN
  7. LEVOTHYROXINE SODIUM [Concomitant]
     Active Substance: LEVOTHYROXINE SODIUM
  8. LIDOCAINE\PRILOCAINE [Concomitant]
     Active Substance: LIDOCAINE\PRILOCAINE
  9. LOSARTAN [Concomitant]
     Active Substance: LOSARTAN
  10. Centrum Silver Ultra [Concomitant]
  11. Aspercreme Original [Concomitant]
  12. MINERALS\VITAMINS [Concomitant]
     Active Substance: MINERALS\VITAMINS
  13. PROCHLORPERAZINE MALEATE [Concomitant]
     Active Substance: PROCHLORPERAZINE MALEATE
  14. ZOFRAN ODT [Concomitant]
     Active Substance: ONDANSETRON HYDROCHLORIDE
  15. POLYETHYLENE GLYCOL 3350 [Concomitant]
     Active Substance: POLYETHYLENE GLYCOL 3350
  16. CALCIUM\VITAMIN D [Concomitant]
     Active Substance: CALCIUM\VITAMIN D
  17. CANNABIDIOL [Concomitant]
     Active Substance: CANNABIDIOL
  18. DEXAMETHASONE [Concomitant]
     Active Substance: DEXAMETHASONE
  19. ALBUTEROL SULFATE [Concomitant]
     Active Substance: ALBUTEROL SULFATE
  20. ASPIRIN [Concomitant]
     Active Substance: ASPIRIN
  21. CALCIUM CARBONATE [Concomitant]
     Active Substance: CALCIUM CARBONATE
  22. ADVAIR DISKUS [Concomitant]
     Active Substance: FLUTICASONE PROPIONATE\SALMETEROL XINAFOATE
  23. LASIX [Concomitant]
     Active Substance: FUROSEMIDE
  24. Dexamethasone Oral Elixir [Concomitant]
  25. NEXIUM [Concomitant]
     Active Substance: ESOMEPRAZOLE MAGNESIUM
  26. FAMOTIDINE [Concomitant]
     Active Substance: FAMOTIDINE

REACTIONS (1)
  - Death [None]
